FAERS Safety Report 7389092-8 (Version None)
Quarter: 2011Q2

REPORT INFORMATION
  Report Type: 
  Country: None (occurrence: None)
  Receive Date: 20110401
  Receipt Date: 20101101
  Transmission Date: 20111010
  Serious: Yes (Hospitalization, Other)
  Sender: FDA-Public Use
  Company Number: US-BAYER-201033782NA

PATIENT
  Sex: Female
  Weight: 74.83 kg

DRUGS (7)
  1. OCELLA [Suspect]
     Indication: ACNE
     Route: 048
     Dates: start: 20071101, end: 20091201
  2. OCELLA [Suspect]
     Indication: POLYCYSTIC OVARIES
  3. YASMIN [Suspect]
     Indication: POLYCYSTIC OVARIES
  4. SPIRONOLACTONE [Concomitant]
     Dosage: UNK
     Dates: start: 20071101, end: 20090901
  5. ADVIL [IBUPROFEN] [Concomitant]
     Indication: PAIN
     Dosage: UNK UNK, PRN
  6. YASMIN [Suspect]
     Indication: ACNE
     Route: 048
     Dates: start: 20071101, end: 20091201
  7. YAZ [Suspect]
     Route: 048
     Dates: start: 20071101, end: 20091201

REACTIONS (9)
  - GALLBLADDER DISORDER [None]
  - CHOLECYSTECTOMY [None]
  - CHOLELITHIASIS [None]
  - PROCEDURAL PAIN [None]
  - ABDOMINAL PAIN UPPER [None]
  - DYSPEPSIA [None]
  - CHOLECYSTITIS CHRONIC [None]
  - GALLBLADDER CHOLESTEROLOSIS [None]
  - WEIGHT INCREASED [None]
